FAERS Safety Report 16043252 (Version 3)
Quarter: 2019Q2

REPORT INFORMATION
  Report Type: Report from Study
  Country: US (occurrence: US)
  Receive Date: 20190306
  Receipt Date: 20190520
  Transmission Date: 20190711
  Serious: Yes (Other)
  Sender: FDA-Public Use
  Company Number: US-JNJFOC-20190120554

PATIENT
  Sex: Male

DRUGS (12)
  1. VITAMIN D3 [Concomitant]
     Active Substance: CHOLECALCIFEROL
  2. IMBRUVICA [Suspect]
     Active Substance: IBRUTINIB
     Indication: CHRONIC LYMPHOCYTIC LEUKAEMIA
     Route: 048
     Dates: start: 20180926
  3. CARBIDOPA W/LEVODOPA [Concomitant]
     Active Substance: CARBIDOPA\LEVODOPA
  4. VITAMIN B [Concomitant]
     Active Substance: VITAMIN B
  5. JANUVIA [Concomitant]
     Active Substance: SITAGLIPTIN PHOSPHATE
  6. GLIPIZIDE. [Concomitant]
     Active Substance: GLIPIZIDE
  7. COENZYME Q10 [Concomitant]
     Active Substance: UBIDECARENONE
  8. VITAMIN B12 [Concomitant]
     Active Substance: CYANOCOBALAMIN
  9. NEUPRO [Concomitant]
     Active Substance: ROTIGOTINE
  10. IMBRUVICA [Suspect]
     Active Substance: IBRUTINIB
     Indication: CHRONIC LYMPHOCYTIC LEUKAEMIA
     Route: 048
     Dates: start: 20181022, end: 20190327
  11. TURMERIC [Concomitant]
     Active Substance: HERBALS\TURMERIC
  12. RITUXAN [Concomitant]
     Active Substance: RITUXIMAB

REACTIONS (5)
  - Granuloma [Recovered/Resolved]
  - Laboratory test abnormal [Unknown]
  - Haematotympanum [Recovered/Resolved]
  - Otorrhoea [Recovering/Resolving]
  - Deafness [Not Recovered/Not Resolved]
